FAERS Safety Report 23687953 (Version 1)
Quarter: 2024Q1

REPORT INFORMATION
  Report Type: Spontaneous
  Country: US (occurrence: None)
  Receive Date: 20240329
  Receipt Date: 20240329
  Transmission Date: 20240410
  Serious: Yes (Other)
  Sender: FDA-Public Use
  Company Number: None

PATIENT
  Age: 50 Year
  Sex: Female
  Weight: 80.1 kg

DRUGS (13)
  1. PROLIA [Suspect]
     Active Substance: DENOSUMAB
     Indication: Osteoporosis postmenopausal
  2. HYDROMORPHONE [Concomitant]
     Active Substance: HYDROMORPHONE
  3. SAVELLA [Concomitant]
  4. BISOPROLOL [Concomitant]
     Active Substance: BISOPROLOL\BISOPROLOL FUMARATE
  5. LEVOTHYROXINE [Concomitant]
  6. CETIRIZINE [Concomitant]
     Active Substance: CETIRIZINE HYDROCHLORIDE
  7. FAMOTIDINE [Concomitant]
  8. pantoprozole [Concomitant]
  9. montaleukast [Concomitant]
  10. hydroxyz [Concomitant]
  11. EZETIMIBE [Concomitant]
     Active Substance: EZETIMIBE
  12. LOSARTAN [Concomitant]
     Active Substance: LOSARTAN
  13. CYCLOBENZAPRINE [Concomitant]

REACTIONS (4)
  - Thoracic vertebral fracture [None]
  - Lumbar vertebral fracture [None]
  - Spinal compression fracture [None]
  - Therapy interrupted [None]

NARRATIVE: CASE EVENT DATE: 20230914
